FAERS Safety Report 12921361 (Version 1)
Quarter: 2016Q4

REPORT INFORMATION
  Report Type: Spontaneous
  Country: NO (occurrence: NO)
  Receive Date: 20161108
  Receipt Date: 20161108
  Transmission Date: 20170207
  Serious: Yes (Hospitalization, Disabling, Other)
  Sender: FDA-Public Use
  Company Number: NO-GLAXOSMITHKLINE-NO2015GSK123692

PATIENT
  Age: 41 Year
  Sex: Male

DRUGS (1)
  1. LAMICTAL [Suspect]
     Active Substance: LAMOTRIGINE
     Indication: BIPOLAR II DISORDER
     Dosage: 25 MG, UNK
     Dates: start: 20141203, end: 20141223

REACTIONS (24)
  - Eye swelling [Recovered/Resolved]
  - Lacrimation decreased [Not Recovered/Not Resolved]
  - Corneal defect [Not Recovered/Not Resolved]
  - Blister [Recovering/Resolving]
  - Dyspnoea [Recovered/Resolved]
  - Scar [Recovering/Resolving]
  - Influenza like illness [Recovering/Resolving]
  - Rash [Recovered/Resolved]
  - Dry mouth [Not Recovered/Not Resolved]
  - Visual acuity reduced [Not Recovered/Not Resolved]
  - Rash macular [Recovering/Resolving]
  - Pigmentation disorder [Recovered/Resolved]
  - Eye pain [Recovering/Resolving]
  - Skin fissures [Not Recovered/Not Resolved]
  - Toxic epidermal necrolysis [Recovering/Resolving]
  - Cough [Recovered/Resolved]
  - Pigmentation disorder [Recovering/Resolving]
  - Pyrexia [Recovered/Resolved]
  - Nasopharyngitis [Recovered/Resolved]
  - Mucous membrane disorder [Recovered/Resolved]
  - Dry skin [Not Recovered/Not Resolved]
  - Skin exfoliation [Recovered/Resolved]
  - Malaise [Recovered/Resolved]
  - Somnolence [Not Recovered/Not Resolved]

NARRATIVE: CASE EVENT DATE: 201412
